FAERS Safety Report 15801420 (Version 2)
Quarter: 2019Q1

REPORT INFORMATION
  Report Type: Report from Study
  Country: DE (occurrence: DE)
  Receive Date: 20190109
  Receipt Date: 20190117
  Transmission Date: 20190417
  Serious: Yes (Hospitalization)
  Sender: FDA-Public Use
  Company Number: DE-ROCHE-2043660

PATIENT
  Age: 62 Year
  Sex: Male
  Weight: 54 kg

DRUGS (16)
  1. NOVALGIN (METAMIZOLE SODIUM) [Concomitant]
     Active Substance: METAMIZOLE SODIUM
  2. OXALIPLATIN. [Suspect]
     Active Substance: OXALIPLATIN
     Indication: GASTRIC CANCER
     Dosage: MOST RECENT DOSE: 06/DEC/2017
     Route: 065
  3. TARGIN [Concomitant]
     Active Substance: NALOXONE HYDROCHLORIDE\OXYCODONE HYDROCHLORIDE
  4. RAMIPRIL. [Concomitant]
     Active Substance: RAMIPRIL
  5. DOCETAXEL. [Suspect]
     Active Substance: DOCETAXEL
     Indication: GASTRIC CANCER
     Dosage: MOST RECENT DOSE: 06/DEC/2017
     Route: 065
  6. MUCOSOLVAN [Concomitant]
     Active Substance: AMBROXOL HYDROCHLORIDE
  7. TRASTUZUMAB. [Suspect]
     Active Substance: TRASTUZUMAB
     Indication: GASTRIC CANCER
     Dosage: MOST RECENT DOSE: 06/DEC/2017
     Route: 042
     Dates: start: 20170621, end: 20180920
  8. FLUOROURACIL. [Suspect]
     Active Substance: FLUOROURACIL
     Indication: GASTRIC CANCER
     Dosage: MOST RECENT DOSE: 06/DEC/2017
     Route: 065
  9. N-ACETYL CYSTEINE [Concomitant]
     Active Substance: ACETYLCYSTEINE
  10. LYRICA [Concomitant]
     Active Substance: PREGABALIN
  11. PERTUZUMAB. [Suspect]
     Active Substance: PERTUZUMAB
     Indication: GASTRIC CANCER
     Dosage: MOST RECENT DOSE: 06/DEC/2017
     Route: 042
     Dates: start: 20170621
  12. LEUCOVORIN. [Suspect]
     Active Substance: LEUCOVORIN
     Indication: GASTRIC CANCER
     Dosage: MOST RECENT DOSE: 06/DEC/2017
     Route: 065
  13. FELODIPINE. [Concomitant]
     Active Substance: FELODIPINE
  14. ASPIRIN. [Concomitant]
     Active Substance: ASPIRIN
  15. METOCLOPRAMIDE. [Concomitant]
     Active Substance: METOCLOPRAMIDE
  16. CLONIDIN [Concomitant]
     Active Substance: CLONIDINE

REACTIONS (3)
  - Vomiting [Recovered/Resolved]
  - Gastrointestinal disorder [Recovered/Resolved]
  - Benign neoplasm [Recovered/Resolved]

NARRATIVE: CASE EVENT DATE: 20171215
